FAERS Safety Report 22219234 (Version 4)
Quarter: 2023Q2

REPORT INFORMATION
  Report Type: Spontaneous
  Country: US (occurrence: US)
  Receive Date: 20230417
  Receipt Date: 20230609
  Transmission Date: 20230722
  Serious: Yes (Hospitalization, Other)
  Sender: FDA-Public Use
  Company Number: US-PFIZER INC-202300155736

PATIENT
  Age: 69 Year
  Sex: Female
  Weight: 61.23 kg

DRUGS (3)
  1. IBRANCE [Suspect]
     Active Substance: PALBOCICLIB
     Indication: Neoplasm malignant
     Dosage: 125 MG, 1X/DAY
     Route: 048
     Dates: start: 202203
  2. IBRANCE [Suspect]
     Active Substance: PALBOCICLIB
     Indication: Breast cancer metastatic
     Dosage: 125 MG, 1X/DAY
     Route: 048
     Dates: end: 20230331
  3. LETROZOLE [Concomitant]
     Active Substance: LETROZOLE
     Indication: Neoplasm malignant
     Dosage: UNK
     Route: 048
     Dates: start: 202203

REACTIONS (14)
  - Abdominal pain upper [Recovered/Resolved]
  - Vomiting [Unknown]
  - Lactic acidosis [Unknown]
  - Viral infection [Unknown]
  - Urinary tract infection [Recovered/Resolved]
  - Chills [Unknown]
  - Hyperhidrosis [Unknown]
  - Pain [Unknown]
  - Diarrhoea [Unknown]
  - Tongue discomfort [Unknown]
  - Nausea [Unknown]
  - Constipation [Recovered/Resolved]
  - Dry mouth [Not Recovered/Not Resolved]
  - Retching [Unknown]

NARRATIVE: CASE EVENT DATE: 20220415
